FAERS Safety Report 10337487 (Version 1)
Quarter: 2014Q3

REPORT INFORMATION
  Report Type: Spontaneous
  Country: FR (occurrence: FR)
  Receive Date: 20140724
  Receipt Date: 20140724
  Transmission Date: 20150326
  Serious: Yes (Hospitalization)
  Sender: FDA-Public Use
  Company Number: FR-ORION CORPORATION ORION PHARMA-ENTC2014-0265

PATIENT
  Age: 86 Year
  Sex: Female

DRUGS (8)
  1. SPECIAFOLDINE [Concomitant]
     Active Substance: FOLIC ACID
     Route: 065
  2. FORLAX [Concomitant]
     Active Substance: POLYETHYLENE GLYCOL 4000
     Route: 065
  3. STALEVO [Suspect]
     Active Substance: CARBIDOPA\ENTACAPONE\LEVODOPA
     Dosage: STRENGTH: 100/25/200 MG
     Route: 048
     Dates: start: 201403, end: 201406
  4. LAMICTAL [Concomitant]
     Active Substance: LAMOTRIGINE
     Route: 065
  5. CARBIMAZOLE [Concomitant]
     Active Substance: CARBIMAZOLE
     Route: 065
  6. SERESTA [Concomitant]
     Active Substance: OXAZEPAM
     Route: 065
  7. PAROXETINE [Concomitant]
     Active Substance: PAROXETINE\PAROXETINE HYDROCHLORIDE
     Route: 065
  8. EXELON [Concomitant]
     Active Substance: RIVASTIGMINE TARTRATE
     Route: 065

REACTIONS (2)
  - Pancytopenia [Recovered/Resolved]
  - Parkinson^s disease [Unknown]

NARRATIVE: CASE EVENT DATE: 201404
